FAERS Safety Report 6646901-5 (Version None)
Quarter: 2010Q1

REPORT INFORMATION
  Report Type: 
  Country: None (occurrence: None)
  Receive Date: 20100323
  Receipt Date: 20100312
  Transmission Date: 20100710
  Serious: Yes (Other)
  Sender: FDA-Public Use
  Company Number: US-WYE-H14084810

PATIENT
  Sex: Female
  Weight: 72 kg

DRUGS (7)
  1. EFFEXOR [Suspect]
     Indication: DEPRESSION
     Route: 048
     Dates: start: 20031008, end: 20090818
  2. IRON [Concomitant]
     Dosage: UNKNOWN
     Route: 048
  3. VITAMIN B-12 [Concomitant]
     Indication: VITAMIN B12 DEFICIENCY
     Dosage: UNKNOWN
  4. MINOCYCLINE HCL [Concomitant]
     Route: 048
     Dates: start: 20060703
  5. VITAMIN D [Concomitant]
     Indication: VITAMIN D DEFICIENCY
     Dosage: UNKNOWN
  6. REBIF [Suspect]
     Indication: MULTIPLE SCLEROSIS
     Route: 058
     Dates: start: 20051111
  7. VITAMIN C [Concomitant]
     Dosage: UNKNOWN

REACTIONS (1)
  - EPILEPSY [None]
